FAERS Safety Report 8591425-1 (Version None)
Quarter: 2012Q3

REPORT INFORMATION
  Report Type: 
  Country: None (occurrence: None)
  Receive Date: 20120803
  Receipt Date: 20120803
  Transmission Date: 20120928
  Serious: Yes (Hospitalization)
  Sender: FDA-Public Use
  Company Number: None

PATIENT
  Sex: Male
  Weight: 89.8122 kg

DRUGS (8)
  1. LACTULOSE [Concomitant]
  2. ONDANSETRON HCL [Concomitant]
  3. REVLIMID [Suspect]
     Indication: CHRONIC LYMPHOCYTIC LEUKAEMIA
     Dosage: 5 MG ONCE DAILY PO
     Route: 048
     Dates: start: 20120725, end: 20120727
  4. REVLIMID [Suspect]
     Indication: B-CELL SMALL LYMPHOCYTIC LYMPHOMA
     Dosage: 5 MG ONCE DAILY PO
     Route: 048
     Dates: start: 20120725, end: 20120727
  5. BACITRACIN [Concomitant]
  6. PROCHLORPERAZINE [Concomitant]
  7. WARFARIN SODIUM [Concomitant]
  8. IMMUNE GLOBULIN NOS [Concomitant]

REACTIONS (4)
  - CELLULITIS [None]
  - RASH [None]
  - HYPOGAMMAGLOBULINAEMIA [None]
  - INFECTION [None]
